FAERS Safety Report 4764902-9 (Version None)
Quarter: 2005Q3

REPORT INFORMATION
  Report Type: 
  Country: None (occurrence: None)
  Receive Date: 20050906
  Receipt Date: 20050822
  Transmission Date: 20060218
  Serious: Yes (Other)
  Sender: FDA-Public Use
  Company Number: 216608

PATIENT
  Age: 29 Year
  Sex: Female

DRUGS (5)
  1. RAPTIVA [Suspect]
     Indication: PSORIASIS
     Dosage: 125 MG, 1/WEEK
     Dates: start: 20050401
  2. CLOBETASOL OINTMENT (CLOBETASOL PROPIONATE) [Concomitant]
  3. ANTIBIOTIC (UNKNOWN) (ANTIBIOTICS NOS) [Concomitant]
  4. METHOTREXATE [Concomitant]
  5. FIORINAL [Concomitant]

REACTIONS (5)
  - DRUG DOSE OMISSION [None]
  - DYSFUNCTIONAL UTERINE BLEEDING [None]
  - MENORRHAGIA [None]
  - PSORIASIS [None]
  - WHITE BLOOD CELL COUNT INCREASED [None]
